FAERS Safety Report 6986137-1 (Version None)
Quarter: 2010Q3

REPORT INFORMATION
  Report Type: 
  Country: None (occurrence: None)
  Receive Date: 20100910
  Receipt Date: 20100828
  Transmission Date: 20110219
  Serious: Yes (Hospitalization, Other)
  Sender: FDA-Public Use
  Company Number: 10-111-2

PATIENT
  Age: 65 Year
  Sex: Female

DRUGS (1)
  1. CEFTRIAXONE FOR INJECTION USP 1 G (NO PREF. NAME) [Suspect]
     Indication: URINARY TRACT INFECTION

REACTIONS (1)
  - ACUTE GENERALISED EXANTHEMATOUS PUSTULOSIS [None]
